FAERS Safety Report 13107879 (Version 1)
Quarter: 2017Q1

REPORT INFORMATION
  Report Type: Spontaneous
  Country: US (occurrence: US)
  Receive Date: 20170112
  Receipt Date: 20170112
  Transmission Date: 20170428
  Serious: No
  Sender: FDA-Public Use
  Company Number: US-ORION CORPORATION ORION PHARMA-ENTC2015-0680

PATIENT
  Age: 85 Year
  Sex: Male
  Weight: 70.7 kg

DRUGS (1)
  1. CARBIDOPA, LEVODOPA AND ENTACAPONE TABLETS [Suspect]
     Active Substance: CARBIDOPA\ENTACAPONE\LEVODOPA
     Indication: PARKINSON^S DISEASE
     Dosage: STRENGTH: 200/50/200 MG
     Route: 048
     Dates: start: 20151105, end: 20151106

REACTIONS (4)
  - Product quality issue [Unknown]
  - Product substitution issue [Unknown]
  - Dysstasia [Not Recovered/Not Resolved]
  - Abasia [Not Recovered/Not Resolved]

NARRATIVE: CASE EVENT DATE: 20151105
